FAERS Safety Report 13591932 (Version 1)
Quarter: 2017Q2

REPORT INFORMATION
  Report Type: Spontaneous
  Country: US (occurrence: US)
  Receive Date: 20170530
  Receipt Date: 20170530
  Transmission Date: 20170830
  Serious: Yes (Other)
  Sender: FDA-Public Use
  Company Number: US-PFIZER INC-2017234483

PATIENT
  Sex: Female

DRUGS (2)
  1. ADVIL [Suspect]
     Active Substance: IBUPROFEN
     Dosage: HALF OF A TABLET
  2. ADVIL [Suspect]
     Active Substance: IBUPROFEN
     Dosage: 1.5 TABLETS IN A 12 HOUR PERIOD

REACTIONS (4)
  - Intentional product misuse [Unknown]
  - Micturition disorder [Recovered/Resolved]
  - Renal impairment [Unknown]
  - Abdominal discomfort [Unknown]
